FAERS Safety Report 4501046-5 (Version None)
Quarter: 2004Q4

REPORT INFORMATION
  Report Type: 
  Country: None (occurrence: None)
  Receive Date: 20041109
  Receipt Date: 20041022
  Transmission Date: 20050328
  Serious: Yes (Hospitalization, Other)
  Sender: FDA-Public Use
  Company Number: USA031050402

PATIENT
  Age: 59 Year
  Sex: Female
  Weight: 67 kg

DRUGS (25)
  1. FORTEO [Suspect]
     Indication: OSTEOPOROSIS
     Dosage: 11 U DAY
     Dates: start: 20031006
  2. HUMALOG [Suspect]
     Indication: OSTEOPOROSIS
  3. FOSAMAX [Concomitant]
  4. MIACALCIN [Concomitant]
  5. REMICADE [Concomitant]
  6. ARAVA [Concomitant]
  7. ACETYLSALICYLIC ACID SRT [Concomitant]
  8. CARDIZEM CD [Concomitant]
  9. CLIMARA [Concomitant]
  10. CELEBREX [Concomitant]
  11. CALCIUM CITRATE [Concomitant]
  12. IMDUR [Concomitant]
  13. LANTUS [Concomitant]
  14. KLONOPIN [Concomitant]
  15. .. [Concomitant]
  16. LAMISIL [Concomitant]
  17. SINEMET [Concomitant]
  18. ZOLOFT [Concomitant]
  19. DURAGESIC [Concomitant]
  20. LIDODERM (LIDOCAINE) [Concomitant]
  21. LORTAB [Concomitant]
  22. HUMIRA [Concomitant]
  23. ALBUTEROL [Concomitant]
  24. LOMOTIL [Concomitant]
  25. PREVACID [Concomitant]

REACTIONS (13)
  - ARTHRALGIA [None]
  - BACK PAIN [None]
  - CARDIAC OPERATION [None]
  - FRACTURED SACRUM [None]
  - IMPAIRED HEALING [None]
  - NERVE INJURY [None]
  - OEDEMA PERIPHERAL [None]
  - OSTEOPOROSIS [None]
  - PAIN IN EXTREMITY [None]
  - PULMONARY OEDEMA [None]
  - SNEEZING [None]
  - WALKING AID USER [None]
  - WHEELCHAIR USER [None]
